FAERS Safety Report 7842661-0 (Version None)
Quarter: 2011Q4

REPORT INFORMATION
  Report Type: 
  Country: None (occurrence: None)
  Receive Date: 20111024
  Receipt Date: 20111024
  Transmission Date: 20120403
  Serious: Yes (Life-Threatening, Disabling, Other)
  Sender: FDA-Public Use
  Company Number: None

PATIENT
  Age: 46 Year
  Sex: Male
  Weight: 92.9874 kg

DRUGS (1)
  1. VIOXX [Suspect]
     Indication: INTERVERTEBRAL DISC DEGENERATION
     Dosage: 12.5 MG AS PRESCRIBED PILL
     Dates: start: 20040101, end: 20050101

REACTIONS (8)
  - PULMONARY EMBOLISM [None]
  - ARRHYTHMIA [None]
  - DIVERTICULITIS [None]
  - GASTROINTESTINAL DISORDER [None]
  - TOXICITY TO VARIOUS AGENTS [None]
  - PRODUCT MEASURED POTENCY ISSUE [None]
  - PULMONARY HYPERTENSION [None]
  - DRUG INEFFECTIVE [None]
